FAERS Safety Report 6571716-6 (Version None)
Quarter: 2010Q1

REPORT INFORMATION
  Report Type: 
  Country: None (occurrence: None)
  Receive Date: 20100205
  Receipt Date: 20100126
  Transmission Date: 20100710
  Serious: Yes (Other)
  Sender: FDA-Public Use
  Company Number: US-PFIZER INC-2009299899

PATIENT
  Sex: Female

DRUGS (17)
  1. ESTRADIOL AND ESTRADIOL CIPIONATE [Suspect]
     Indication: HORMONE REPLACEMENT THERAPY
     Dosage: UNK
  2. PREMARIN [Suspect]
     Indication: HORMONE REPLACEMENT THERAPY
     Dosage: UNK
  3. PREMARIN [Suspect]
     Indication: HOT FLUSH
  4. PREMARIN [Suspect]
     Indication: VULVOVAGINAL DRYNESS
  5. ESTRATEST [Suspect]
     Indication: HORMONE REPLACEMENT THERAPY
     Dosage: UNK
  6. ZIAC [Concomitant]
     Dosage: 2.5MG/6.25MG
     Route: 048
  7. Z-PAK [Concomitant]
     Dosage: 250 MG, AS DIRECTED
  8. BEXTRA [Concomitant]
     Dosage: 10 MG, 1X/DAY
     Route: 048
  9. PRILOSEC [Concomitant]
     Dosage: 20 MG, 1X/DAY
     Route: 048
  10. DARVOCET-N 100 [Concomitant]
     Dosage: 100-650MG, AS DIRECTED
  11. IBUPROFEN [Concomitant]
     Dosage: 800 MG, UNK
  12. ULTRAM [Concomitant]
     Dosage: 50 MG, 4X/DAY
     Route: 048
  13. ZOLOFT [Concomitant]
     Dosage: 50 MG, 1X/DAY
     Route: 048
  14. DESYREL [Concomitant]
     Dosage: 50 MG, AS DIRECTED
  15. ACIPHEX [Concomitant]
     Dosage: 20 MG, 1X/DAY
     Route: 048
  16. BACTRIM DS [Concomitant]
     Dosage: 800-160MG, TWICE DAILY
     Route: 048
  17. CIPROFLOXACIN [Concomitant]
     Dosage: 500 MG, 2X/DAY
     Route: 048

REACTIONS (6)
  - CARDIAC DISORDER [None]
  - CHEST PAIN [None]
  - HYPERTENSION [None]
  - INFLUENZA LIKE ILLNESS [None]
  - PULMONARY CONGESTION [None]
  - THYROID NEOPLASM [None]
